FAERS Safety Report 9352343 (Version 1)
Quarter: 2013Q2

REPORT INFORMATION
  Report Type: Spontaneous
  Country: US (occurrence: US)
  Receive Date: 20130617
  Receipt Date: 20130617
  Transmission Date: 20140414
  Serious: Yes (Other)
  Sender: FDA-Public Use
  Company Number: US-ABBOTT-13P-163-1103777-00

PATIENT
  Age: 54 Year
  Sex: Female
  Weight: 64.92 kg

DRUGS (7)
  1. DEPAKOTE ER [Suspect]
     Indication: BIPOLAR DISORDER
     Route: 048
     Dates: start: 2000
  2. LIPITOR [Concomitant]
     Indication: BLOOD CHOLESTEROL INCREASED
  3. SYNTHROID [Concomitant]
     Indication: HYPOTHYROIDISM
  4. LISINOPRIL [Concomitant]
     Indication: HYPERTENSION
  5. ALLOPURINOL [Concomitant]
     Indication: GOUT
  6. SINGULAIR [Concomitant]
     Indication: SEASONAL ALLERGY
  7. ALLEGRA [Concomitant]
     Indication: SEASONAL ALLERGY

REACTIONS (11)
  - Osteoarthritis [Not Recovered/Not Resolved]
  - Joint injury [Recovered/Resolved]
  - Road traffic accident [Recovered/Resolved]
  - Clostridium difficile infection [Not Recovered/Not Resolved]
  - Diarrhoea [Recovering/Resolving]
  - Weight decreased [Not Recovered/Not Resolved]
  - Decreased appetite [Not Recovered/Not Resolved]
  - Bronchitis [Recovered/Resolved]
  - Amylase increased [Not Recovered/Not Resolved]
  - Lipase increased [Not Recovered/Not Resolved]
  - Colitis [Not Recovered/Not Resolved]
